FAERS Safety Report 14271410 (Version 6)
Quarter: 2019Q4

REPORT INFORMATION
  Report Type: Spontaneous
  Country: US (occurrence: US)
  Receive Date: 20171211
  Receipt Date: 20191218
  Transmission Date: 20200122
  Serious: Yes (Hospitalization, Other)
  Sender: FDA-Public Use
  Company Number: US-PFIZER INC-2017526611

PATIENT
  Age: 69 Year
  Sex: Female
  Weight: 75 kg

DRUGS (17)
  1. PREDNISONE. [Concomitant]
     Active Substance: PREDNISONE
     Indication: RENAL TRANSPLANT
     Dosage: 5 MG, DAILY
     Route: 048
     Dates: start: 1973
  2. TRESIBA [Concomitant]
     Active Substance: INSULIN DEGLUDEC
     Indication: DIABETES MELLITUS
     Dosage: 22 IU, 1X/DAY (22 UNITS; SHOT AT BEDTIME)
     Dates: start: 2012
  3. BYDUREON [Concomitant]
     Active Substance: EXENATIDE
     Indication: DIABETES MELLITUS
     Dosage: 2 MG, WEEKLY (2MG SHOT EVERY 7 DAYS)
     Dates: start: 2009
  4. LEVOTHYROXINE. [Concomitant]
     Active Substance: LEVOTHYROXINE
     Indication: THYROID DISORDER
     Dosage: 112 UG, DAILY
     Route: 048
     Dates: start: 1974
  5. XANAX [Concomitant]
     Active Substance: ALPRAZOLAM
     Indication: ANXIETY
     Dosage: 0.25 MG, AS NEEDED
     Route: 048
     Dates: start: 2001
  6. MULTIVITAMINS [Concomitant]
     Active Substance: VITAMINS
     Indication: VITAMIN SUPPLEMENTATION
     Dosage: 1 DF, DAILY
     Route: 048
     Dates: start: 2000
  7. RAPAMUNE [Suspect]
     Active Substance: SIROLIMUS
     Dosage: UNK (1MG TABLET ORALLY TAKE 1 TABLET DAILY ALTERNATING WITH 2 TABLES EVERY 3RD DAY)
     Route: 048
     Dates: start: 201505
  8. ATORVASTATIN [Concomitant]
     Active Substance: ATORVASTATIN
     Indication: BLOOD CHOLESTEROL ABNORMAL
     Dosage: 10 MG, DAILY
     Route: 048
     Dates: start: 2005
  9. TRAMADOL. [Concomitant]
     Active Substance: TRAMADOL
     Indication: BACK PAIN
     Dosage: 50MG; FOUR PER DAY
     Route: 048
     Dates: start: 2015
  10. RAPAMUNE [Suspect]
     Active Substance: SIROLIMUS
     Indication: RENAL TRANSPLANT
     Dosage: 1 MG EVERY OTHER DAY ALTERNATING WITH 2 TABLETS EVERY OTHER DAY
     Route: 048
     Dates: start: 2014
  11. LISINOPRIL. [Concomitant]
     Active Substance: LISINOPRIL
     Indication: HYPERTENSION
     Dosage: 10 MG, 1X/DAY
     Route: 048
     Dates: start: 2014
  12. TYKERB [Concomitant]
     Active Substance: LAPATINIB DITOSYLATE
     Indication: CHEMOTHERAPY
     Dosage: 1000 MG, 1X/DAY (250MG; FOUR ON AN EMPTY STOMACH EVERY MORNING)
     Route: 048
     Dates: start: 2017
  13. RESTORIL [Concomitant]
     Active Substance: TEMAZEPAM
     Indication: INSOMNIA
     Dosage: 30 MG, UNK (30MG CAPSULE; ONE BY MOUTH)
     Route: 048
     Dates: start: 2000
  14. XELODA [Concomitant]
     Active Substance: CAPECITABINE
     Indication: CHEMOTHERAPY
     Dosage: 1000 MG, 2X/DAY (TWO 500MG CAPSULES BY MOUTH TWICE PER DAY)
     Route: 048
     Dates: start: 2016
  15. METOPROLOL. [Concomitant]
     Active Substance: METOPROLOL
     Indication: HYPERTENSION
     Dosage: 25 MG, 1X/DAY
     Route: 048
     Dates: start: 2000
  16. MAGNESIUM OXIDE. [Concomitant]
     Active Substance: MAGNESIUM OXIDE
     Indication: ARTHROPATHY
     Dosage: 250 MG, 1X/DAY
     Route: 048
     Dates: start: 2010
  17. ZOFRAN [Concomitant]
     Active Substance: ONDANSETRON HYDROCHLORIDE
     Indication: PROPHYLAXIS OF NAUSEA AND VOMITING
     Dosage: 4 MG, AS NEEDED (4MG BY MOUTH; TAKES ONE AS NEEDED)
     Route: 048
     Dates: start: 2016

REACTIONS (8)
  - Hypertriglyceridaemia [Unknown]
  - Infection [Unknown]
  - Pre-existing condition improved [Unknown]
  - Transaminases increased [Unknown]
  - Breast cancer [Not Recovered/Not Resolved]
  - Neoplasm progression [Not Recovered/Not Resolved]
  - Therapeutic response unexpected [Unknown]
  - Impaired healing [Recovered/Resolved]

NARRATIVE: CASE EVENT DATE: 201405
